FAERS Safety Report 10922835 (Version 1)
Quarter: 2015Q1

REPORT INFORMATION
  Report Type: Spontaneous
  Country: US (occurrence: None)
  Receive Date: 20150313
  Receipt Date: 20150313
  Transmission Date: 20150721
  Serious: Yes (Hospitalization)
  Sender: FDA-Public Use
  Company Number: 201502158

PATIENT
  Age: 68 Year
  Sex: Male

DRUGS (2)
  1. TESTOPEL [Suspect]
     Active Substance: TESTOSTERONE
     Indication: BLOOD TESTOSTERONE DECREASED
     Route: 058
     Dates: start: 20120906, end: 20121213
  2. DEPO-TESTOSTERONE [Suspect]
     Active Substance: TESTOSTERONE CYPIONATE
     Indication: BLOOD TESTOSTERONE DECREASED
     Dates: start: 20120104, end: 201209

REACTIONS (7)
  - Fear [None]
  - Family stress [None]
  - Anxiety [None]
  - Myocardial infarction [None]
  - Anhedonia [None]
  - Emotional distress [None]
  - Social problem [None]

NARRATIVE: CASE EVENT DATE: 20130408
